FAERS Safety Report 7559521-5 (Version None)
Quarter: 2011Q2

REPORT INFORMATION
  Report Type: 
  Country: None (occurrence: None)
  Receive Date: 20110617
  Receipt Date: 20110617
  Transmission Date: 20111010
  Serious: Yes (Hospitalization)
  Sender: FDA-Public Use
  Company Number: None

PATIENT
  Age: 75 Year
  Sex: Male
  Weight: 114 kg

DRUGS (1)
  1. WARFARIN SODIUM [Suspect]
     Indication: ATRIAL FIBRILLATION
     Dosage: 2MG EVERY DAY PO
     Route: 048
     Dates: start: 19980302

REACTIONS (3)
  - FALL [None]
  - CEREBRAL HAEMORRHAGE TRAUMATIC [None]
  - LACERATION [None]
